FAERS Safety Report 5594671-4 (Version None)
Quarter: 2007Q4

REPORT INFORMATION
  Report Type: 
  Country: None (occurrence: None)
  Receive Date: 20071218
  Receipt Date: 20071016
  Transmission Date: 20080405
  Serious: Yes (Death)
  Sender: FDA-Public Use
  Company Number: PHO-2007-049

PATIENT
  Age: 56 Year
  Sex: Male

DRUGS (7)
  1. PHOTOFRIN [Suspect]
     Indication: BLADDER CANCER
     Dosage: 143MG; 1 DOSE; IV
     Route: 042
     Dates: start: 20071010
  2. PLAVIX [Concomitant]
  3. ASPIRIN [Concomitant]
  4. FLUOXETINE [Concomitant]
  5. METOPROLOL TARTRATE [Concomitant]
  6. FENOFIBRATE [Concomitant]
  7. VYTORIN (EZETIMIBE AND SIMVASTATIN) [Concomitant]

REACTIONS (2)
  - BLADDER SPASM [None]
  - DEATH [None]
